FAERS Safety Report 4898016-4 (Version None)
Quarter: 2006Q1

REPORT INFORMATION
  Report Type: 
  Country: None (occurrence: None)
  Receive Date: 20060201
  Receipt Date: 20060120
  Transmission Date: 20060701
  Serious: Yes (Other)
  Sender: FDA-Public Use
  Company Number: US-ROCHE-433171

PATIENT
  Sex: Female

DRUGS (5)
  1. CLONAZEPAM [Suspect]
     Indication: COMPLEX PARTIAL SEIZURES
     Route: 064
  2. KEPPRA [Suspect]
     Indication: COMPLEX PARTIAL SEIZURES
     Route: 064
     Dates: start: 20050605, end: 20051107
  3. KEPPRA [Suspect]
     Dosage: DOSE TITRATED UP TO 3000MG DAILY.
     Route: 064
     Dates: start: 20051108, end: 20051227
  4. GABAPENTIN [Suspect]
     Indication: COMPLEX PARTIAL SEIZURES
     Route: 064
  5. PRENATAL VITAMINS [Concomitant]
     Route: 064
     Dates: end: 20051227

REACTIONS (4)
  - DRUG EXPOSURE DURING PREGNANCY [None]
  - INFANT [None]
  - METABOLIC FUNCTION TEST ABNORMAL [None]
  - NEONATAL DISORDER [None]
